FAERS Safety Report 6227551-1 (Version None)
Quarter: 2009Q2

REPORT INFORMATION
  Report Type: 
  Country: None (occurrence: None)
  Receive Date: 20090612
  Receipt Date: 20090602
  Transmission Date: 20091009
  Serious: Yes (Other)
  Sender: FDA-Public Use
  Company Number: BR-PFIZER INC-2009221380

PATIENT
  Age: 72 Year

DRUGS (8)
  1. CHAMPIX [Suspect]
     Indication: TOBACCO USER
     Dosage: 1.0 MG, 2X/DAY
     Dates: start: 20090522
  2. BENICAR [Concomitant]
     Dosage: UNK
  3. LASIX [Concomitant]
     Dosage: UNK
  4. CODEINE PHOSPHATE AND ACETAMINOPHEN [Concomitant]
     Dosage: UNK
  5. BAMIFIX [Concomitant]
     Dosage: UNK
  6. BEROTEC [Concomitant]
     Dosage: UNK
     Route: 055
  7. ATROVENT [Concomitant]
     Dosage: UNK
     Route: 055
  8. PURAN T4 [Concomitant]
     Dosage: UNK

REACTIONS (10)
  - DIARRHOEA [None]
  - EYE PRURITUS [None]
  - HEADACHE [None]
  - LIP OEDEMA [None]
  - MALAISE [None]
  - NAUSEA [None]
  - NERVOUSNESS [None]
  - PRURITUS [None]
  - SOMNOLENCE [None]
  - VOMITING [None]
